FAERS Safety Report 24783219 (Version 2)
Quarter: 2025Q1

REPORT INFORMATION
  Report Type: Spontaneous
  Country: CN (occurrence: CN)
  Receive Date: 20241227
  Receipt Date: 20250127
  Transmission Date: 20250409
  Serious: Yes (Other)
  Sender: MERCK
  Company Number: CN-009507513-2412CHN007402

PATIENT
  Age: 17 Year
  Sex: Female

DRUGS (4)
  1. IMIPENEM AND CILASTATIN [Suspect]
     Active Substance: CILASTATIN SODIUM\IMIPENEM
     Indication: Mycobacterium abscessus infection
     Dosage: 1 G PER DOSE, TWICE DAILY
     Route: 041
     Dates: start: 202111, end: 202112
  2. AMIKACIN [Concomitant]
     Active Substance: AMIKACIN
     Indication: Mycobacterium abscessus infection
     Dosage: 0.4 G PER DOSE, ONCE DAILY
     Route: 041
     Dates: start: 202111, end: 202112
  3. LINEZOLID [Concomitant]
     Active Substance: LINEZOLID
     Indication: Mycobacterium abscessus infection
     Dosage: 0.6 G PER DOSE, ONCE DAILY
     Dates: start: 202111, end: 202112
  4. AZITHROMYCIN [Concomitant]
     Active Substance: AZITHROMYCIN
     Indication: Mycobacterium abscessus infection
     Dosage: 0.5 G PER DOSE, ONCE DAILY
     Route: 048
     Dates: start: 202111, end: 202112

REACTIONS (2)
  - Antimicrobial susceptibility test resistant [Unknown]
  - Incorrect dosage administered [Unknown]

NARRATIVE: CASE EVENT DATE: 20211101
